FAERS Safety Report 9523242 (Version 1)
Quarter: 2013Q3

REPORT INFORMATION
  Report Type: Spontaneous
  Country: JP (occurrence: JP)
  Receive Date: 20130913
  Receipt Date: 20130913
  Transmission Date: 20140515
  Serious: Yes (Other)
  Sender: FDA-Public Use
  Company Number: JP-ELI_LILLY_AND_COMPANY-JP201309001225

PATIENT
  Age: 90 Year
  Sex: Female
  Weight: 39.5 kg

DRUGS (1)
  1. EVISTA [Suspect]
     Dosage: 60 MG, QOD
     Route: 048

REACTIONS (2)
  - Creatinine renal clearance decreased [Unknown]
  - Inappropriate schedule of drug administration [Not Recovered/Not Resolved]
